FAERS Safety Report 7706670-4 (Version None)
Quarter: 2011Q3

REPORT INFORMATION
  Report Type: 
  Country: None (occurrence: None)
  Receive Date: 20110824
  Receipt Date: 20110517
  Transmission Date: 20111222
  Serious: No
  Sender: FDA-Public Use
  Company Number: US-GLAXOSMITHKLINE-A0927598A

PATIENT
  Age: 41 Year
  Sex: Female

DRUGS (6)
  1. PROZAC [Concomitant]
  2. ARZERRA [Suspect]
     Indication: RHEUMATOID ARTHRITIS
     Route: 042
     Dates: start: 20110510
  3. NAPROXEN [Concomitant]
  4. FOLIC ACID [Concomitant]
  5. TRAMADOL HCL [Concomitant]
  6. METHOTREXATE [Concomitant]

REACTIONS (1)
  - RASH [None]
